FAERS Safety Report 6305866-6 (Version None)
Quarter: 2009Q3

REPORT INFORMATION
  Report Type: 
  Country: None (occurrence: None)
  Receive Date: 20090812
  Receipt Date: 20090803
  Transmission Date: 20100115
  Serious: Yes (Death)
  Sender: FDA-Public Use
  Company Number: US-NAPPMUNDI-USA-2009-0038839

PATIENT
  Sex: Male

DRUGS (1)
  1. OXYCONTIN [Suspect]
     Indication: RENAL CANCER METASTATIC
     Dosage: 20 MG, BID
     Route: 048
     Dates: start: 20070101, end: 20090627

REACTIONS (2)
  - CACHEXIA [None]
  - PNEUMONIA [None]
